FAERS Safety Report 4377620-6 (Version None)
Quarter: 2004Q2

REPORT INFORMATION
  Report Type: 
  Country: None (occurrence: None)
  Receive Date: 20040615
  Receipt Date: 20040602
  Transmission Date: 20050107
  Serious: Yes (Hospitalization, Other)
  Sender: FDA-Public Use
  Company Number: DE-GLAXOSMITHKLINE-B0335085A

PATIENT
  Age: 49 Year
  Sex: Male

DRUGS (3)
  1. COMBIVIR [Suspect]
     Indication: HIV INFECTION
     Route: 048
     Dates: start: 20001017
  2. DPC 083 [Suspect]
     Indication: HIV INFECTION
     Dosage: 200MG PER DAY
     Route: 048
     Dates: start: 20001017
  3. TEMAZEPAM [Concomitant]
     Dates: start: 20001101, end: 20010201

REACTIONS (4)
  - DEPRESSION [None]
  - DIARRHOEA [None]
  - FAMILY STRESS [None]
  - SUICIDAL IDEATION [None]
